FAERS Safety Report 10434711 (Version 1)
Quarter: 2014Q3

REPORT INFORMATION
  Report Type: Spontaneous
  Country: US (occurrence: None)
  Receive Date: 20140815
  Receipt Date: 20140815
  Transmission Date: 20150326
  Serious: No
  Sender: FDA-Public Use
  Company Number: 2014TUS002664

PATIENT
  Sex: Male

DRUGS (1)
  1. BRINTELLIX [Suspect]
     Active Substance: VORTIOXETINE HYDROBROMIDE
     Indication: MAJOR DEPRESSION
     Route: 048
     Dates: start: 20140115, end: 20140313

REACTIONS (10)
  - Muscle spasms [None]
  - Middle insomnia [None]
  - Drug dose omission [None]
  - Rhinorrhoea [None]
  - Tachyphrenia [None]
  - Insomnia [None]
  - Nausea [None]
  - Retching [None]
  - Vomiting [None]
  - Panic attack [None]
